FAERS Safety Report 6610651-1 (Version None)
Quarter: 2010Q1

REPORT INFORMATION
  Report Type: 
  Country: None (occurrence: None)
  Receive Date: 20100302
  Receipt Date: 20100223
  Transmission Date: 20100710
  Serious: Yes (Death, Hospitalization)
  Sender: FDA-Public Use
  Company Number: A0845994A

PATIENT
  Sex: Male
  Weight: 75 kg

DRUGS (1)
  1. AVANDIA [Suspect]
     Dosage: 4MG PER DAY
     Route: 048

REACTIONS (5)
  - ARTERIAL OCCLUSIVE DISEASE [None]
  - DEATH [None]
  - MYOCARDIAL INFARCTION [None]
  - THROMBOSIS [None]
  - VENOUS OCCLUSION [None]
